FAERS Safety Report 23957290 (Version 1)
Quarter: 2024Q2

REPORT INFORMATION
  Report Type: Report from Study
  Country: TW (occurrence: TW)
  Receive Date: 20240610
  Receipt Date: 20240610
  Transmission Date: 20240715
  Serious: Yes (Other)
  Sender: FDA-Public Use
  Company Number: TW-TAKEDA-2024TUS057262

PATIENT
  Age: 67 Year
  Sex: Female

DRUGS (1)
  1. VEDOLIZUMAB [Suspect]
     Active Substance: VEDOLIZUMAB
     Indication: Colitis ulcerative
     Dosage: 300 MILLIGRAM
     Route: 042
     Dates: start: 20231214, end: 20240321

REACTIONS (1)
  - Leukaemia [Not Recovered/Not Resolved]

NARRATIVE: CASE EVENT DATE: 20240603
